FAERS Safety Report 21897006 (Version 1)
Quarter: 2023Q1

REPORT INFORMATION
  Report Type: Spontaneous
  Country: US (occurrence: US)
  Receive Date: 20230123
  Receipt Date: 20230123
  Transmission Date: 20230417
  Serious: No
  Sender: FDA-Public Use
  Company Number: US-PERRIGO-22US007890

PATIENT
  Age: 0 Year
  Sex: Male
  Weight: 9.161 kg

DRUGS (6)
  1. IBUPROFEN [Suspect]
     Active Substance: IBUPROFEN
     Indication: Pyrexia
     Dosage: 75 MG, SINGLE AT 1143
     Route: 048
     Dates: start: 20220529, end: 20220529
  2. IBUPROFEN [Suspect]
     Active Substance: IBUPROFEN
     Indication: Myalgia
     Dosage: 15 MG, SINGLE AT 1930
     Route: 048
     Dates: start: 20220529, end: 20220529
  3. IBUPROFEN [Suspect]
     Active Substance: IBUPROFEN
     Dosage: 35 MG, SINGLE AT 0030
     Route: 048
     Dates: start: 20220530, end: 20220530
  4. IBUPROFEN [Suspect]
     Active Substance: IBUPROFEN
     Dosage: 75 MG, SINGLE AT 0957
     Route: 048
     Dates: start: 20220530, end: 20220530
  5. TYLENOL [Concomitant]
     Active Substance: ACETAMINOPHEN
     Indication: Pyrexia
     Dosage: UNK
     Route: 048
     Dates: start: 20220215, end: 20220530
  6. TYLENOL [Concomitant]
     Active Substance: ACETAMINOPHEN
     Indication: Teething

REACTIONS (5)
  - Peripheral coldness [Recovering/Resolving]
  - Lethargy [Recovering/Resolving]
  - Somnolence [Recovering/Resolving]
  - Body temperature decreased [Recovering/Resolving]
  - Incorrect dose administered [Recovered/Resolved]

NARRATIVE: CASE EVENT DATE: 20220529
